FAERS Safety Report 5756274-8 (Version None)
Quarter: 2008Q2

REPORT INFORMATION
  Report Type: 
  Country: None (occurrence: None)
  Receive Date: 20080602
  Receipt Date: 20080521
  Transmission Date: 20081010
  Serious: Yes (Other)
  Sender: FDA-Public Use
  Company Number: CO-PFIZER INC-2008045821

PATIENT
  Sex: Female

DRUGS (2)
  1. CHANTIX [Suspect]
     Indication: SMOKING CESSATION THERAPY
     Dosage: TEXT:1.0 MG BID EVERY DAY TDD:2.0 MG
     Route: 048
  2. FLUOXETINE HCL [Concomitant]

REACTIONS (3)
  - ANXIETY [None]
  - RESPIRATORY DISTRESS [None]
  - TACHYCARDIA [None]
